FAERS Safety Report 4913585-3 (Version None)
Quarter: 2006Q1

REPORT INFORMATION
  Report Type: 
  Country: None (occurrence: None)
  Receive Date: 20060216
  Receipt Date: 20060208
  Transmission Date: 20060701
  Serious: Yes (Hospitalization, Other)
  Sender: FDA-Public Use
  Company Number: US-BOEHRINGER INGELHEIM PHARMACEUTICALS, INC.-2006-BP-01530BP

PATIENT
  Sex: Female
  Weight: 99.79 kg

DRUGS (12)
  1. ATROVENT [Suspect]
     Indication: ASTHMA
     Route: 055
     Dates: start: 19900101
  2. ALBUTEROL [Suspect]
     Indication: ASTHMA
     Route: 055
     Dates: start: 19900101
  3. ALBUTEROL [Suspect]
     Route: 055
     Dates: start: 19900101
  4. LEVALBUTEROL HCL [Suspect]
     Indication: ASTHMA
     Dates: start: 19900101
  5. PREDNISONE [Concomitant]
     Indication: ASTHMA
  6. MIRAPEX [Concomitant]
     Indication: RESTLESS LEGS SYNDROME
     Dates: start: 20030101
  7. ADVAIR DISKUS 100/50 [Concomitant]
     Indication: ASTHMA
     Dates: start: 20040101
  8. SINGULAIR [Concomitant]
     Indication: ASTHMA
     Dates: start: 20030101
  9. TILADE [Concomitant]
     Indication: ASTHMA
     Dates: start: 20050101
  10. ULTRAM [Concomitant]
  11. NEURONTIN [Concomitant]
  12. ASTELIN [Concomitant]
     Indication: NASAL DISORDER

REACTIONS (18)
  - AORTIC VALVE INCOMPETENCE [None]
  - BLOOD CHLORIDE INCREASED [None]
  - BLOOD GLUCOSE INCREASED [None]
  - BLOOD UREA ABNORMAL [None]
  - BRADYCARDIA [None]
  - CHEST DISCOMFORT [None]
  - CHEST PAIN [None]
  - ECHOCARDIOGRAM ABNORMAL [None]
  - ELECTROCARDIOGRAM ST SEGMENT ELEVATION [None]
  - HEPATIC ENZYME INCREASED [None]
  - LABORATORY TEST ABNORMAL [None]
  - MITRAL VALVE INCOMPETENCE [None]
  - MYOCARDIAL INFARCTION [None]
  - NEUTROPHIL COUNT ABNORMAL [None]
  - OBSTRUCTIVE AIRWAYS DISORDER [None]
  - PERICARDIAL EFFUSION [None]
  - SLEEP DISORDER [None]
  - TRICUSPID VALVE INCOMPETENCE [None]
